FAERS Safety Report 8231983-X (Version None)
Quarter: 2012Q1

REPORT INFORMATION
  Report Type: 
  Country: None (occurrence: None)
  Receive Date: 20120323
  Receipt Date: 20120321
  Transmission Date: 20120608
  Serious: No
  Sender: FDA-Public Use
  Company Number: US-BAYER-2012-028491

PATIENT
  Age: 89 Year
  Sex: Female
  Weight: 79 kg

DRUGS (3)
  1. ATENOLOL [Concomitant]
  2. ADENOSINE [Concomitant]
  3. ALEVE (CAPLET) [Suspect]
     Indication: PAIN
     Dosage: 2 TABS AS NEEDED
     Route: 048
     Dates: start: 20120301

REACTIONS (1)
  - NO ADVERSE EVENT [None]
